FAERS Safety Report 6701905-9 (Version None)
Quarter: 2010Q2

REPORT INFORMATION
  Report Type: 
  Country: None (occurrence: None)
  Receive Date: 20100429
  Receipt Date: 20100419
  Transmission Date: 20101027
  Serious: Yes (Other)
  Sender: FDA-Public Use
  Company Number: US-PFIZER INC-2010050219

PATIENT
  Sex: Female
  Weight: 81.6 kg

DRUGS (5)
  1. SUTENT [Suspect]
     Indication: METASTATIC RENAL CELL CARCINOMA
     Dosage: 50 MG, 1X/DAY,
     Route: 048
     Dates: start: 20100101
  2. WARFARIN SODIUM [Concomitant]
     Indication: THROMBOSIS
     Dosage: UNK
  3. LORAZEPAM [Concomitant]
     Indication: PAIN
     Dosage: FREQUENCY: AS NEEDED,
  4. ZOFRAN [Concomitant]
     Indication: NAUSEA
     Dosage: 4 MG, UNK
  5. OMEPRAZOLE [Concomitant]
     Indication: ABDOMINAL PAIN UPPER
     Dosage: UNK

REACTIONS (2)
  - IRRITABLE BOWEL SYNDROME [None]
  - SWELLING [None]
